FAERS Safety Report 7321827-2 (Version None)
Quarter: 2011Q1

REPORT INFORMATION
  Report Type: 
  Country: None (occurrence: None)
  Receive Date: 20110228
  Receipt Date: 20110215
  Transmission Date: 20110831
  Serious: Yes (Hospitalization, Disabling, Congenital Anomaly)
  Sender: FDA-Public Use
  Company Number: PHHY2011GB12201

PATIENT

DRUGS (4)
  1. CLENIL MODULITE [Concomitant]
     Indication: ASTHMA
  2. FEXOFENADINE [Concomitant]
     Indication: SEASONAL ALLERGY
     Dosage: 180 MG, UNK
     Dates: start: 20090603
  3. FLUOXETINE [Suspect]
     Dosage: UNK
     Route: 064
     Dates: start: 20100413, end: 20100617
  4. VENTOLIN [Concomitant]
     Indication: ASTHMA

REACTIONS (2)
  - MULTIPLE CONGENITAL ABNORMALITIES [None]
  - DRUG EXPOSURE DURING PREGNANCY [None]
